FAERS Safety Report 7426892-X (Version None)
Quarter: 2011Q2

REPORT INFORMATION
  Report Type: 
  Country: None (occurrence: None)
  Receive Date: 20110420
  Receipt Date: 20110406
  Transmission Date: 20111010
  Serious: Yes (Death)
  Sender: FDA-Public Use
  Company Number: US-CELGENEUS-ABUTS-11-0273

PATIENT
  Sex: Male
  Weight: 72.64 kg

DRUGS (2)
  1. ABRAXANE [Suspect]
     Dates: start: 20110113, end: 20110217
  2. GEMZAR [Concomitant]
     Route: 051
     Dates: start: 20110113, end: 20110217

REACTIONS (1)
  - PANCREATIC CARCINOMA [None]
